FAERS Safety Report 17492284 (Version 2)
Quarter: 2020Q1

REPORT INFORMATION
  Report Type: Spontaneous
  Country: US (occurrence: US)
  Receive Date: 20200304
  Receipt Date: 20200317
  Transmission Date: 20200409
  Serious: Yes (Other)
  Sender: FDA-Public Use
  Company Number: US-AUROBINDO-AUR-APL-2020-010571

PATIENT
  Age: 53 Year
  Sex: Female
  Weight: 76 kg

DRUGS (2)
  1. FLUCONAZOLE TABLETS 200 MG [Suspect]
     Active Substance: FLUCONAZOLE
     Indication: FUNGAL INFECTION
     Dosage: 1 DOSAGE FORM, ONCE A DAY FOR 7 DAYS
     Route: 048
     Dates: end: 20200216
  2. FLUCONAZOLE TABLETS 150 MG [Suspect]
     Active Substance: FLUCONAZOLE
     Indication: FUNGAL INFECTION
     Dosage: 150 MILLIGRAM, ONCE A DAY
     Route: 048
     Dates: start: 20200131, end: 20200214

REACTIONS (15)
  - Gastrointestinal disorder [Unknown]
  - Urinary retention [Unknown]
  - Product substitution issue [Unknown]
  - Vulvovaginal pain [Unknown]
  - Proctalgia [Unknown]
  - Anorectal discomfort [Recovering/Resolving]
  - Vaginal discharge [Recovering/Resolving]
  - Drug ineffective [Unknown]
  - Constipation [Unknown]
  - Abdominal distension [Unknown]
  - Malaise [Unknown]
  - Product dose omission [Unknown]
  - Vulvovaginal burning sensation [Recovering/Resolving]
  - Uterine leiomyoma [Unknown]
  - Cough [Unknown]
